FAERS Safety Report 21838364 (Version 4)
Quarter: 2023Q1

REPORT INFORMATION
  Report Type: Spontaneous
  Country: US (occurrence: US)
  Receive Date: 20230109
  Receipt Date: 20230228
  Transmission Date: 20230418
  Serious: No
  Sender: FDA-Public Use
  Company Number: US-PFIZER INC-PV202300001529

PATIENT
  Age: 12 Year
  Sex: Male
  Weight: 28.299 kg

DRUGS (1)
  1. GENOTROPIN [Suspect]
     Active Substance: SOMATROPIN
     Indication: Growth disorder
     Dosage: 2 MG, 1X/DAY
     Dates: start: 202212

REACTIONS (1)
  - Product dose omission issue [Unknown]
